FAERS Safety Report 20038342 (Version 1)
Quarter: 2021Q4

REPORT INFORMATION
  Report Type: Spontaneous
  Country: US (occurrence: US)
  Receive Date: 20211105
  Receipt Date: 20211105
  Transmission Date: 20220303
  Serious: Yes (Other)
  Sender: FDA-Public Use
  Company Number: US-EYEVANCE PHARMACEUTICALS-2021EYE00092

PATIENT
  Age: 60 Year
  Sex: Male
  Weight: 104.31 kg

DRUGS (3)
  1. NATACYN [Suspect]
     Active Substance: NATAMYCIN
     Indication: Eye infection fungal
     Dosage: 1 DROP IN THE RIGHT EYE EVERY 2 HOURS EXCEPT WHEN SLEEPING
     Route: 047
     Dates: start: 20210819
  2. UNSPECIFIED INGREDIENT [Concomitant]
     Active Substance: UNSPECIFIED INGREDIENT
  3. UNSPECIFIED INGREDIENT [Concomitant]
     Active Substance: UNSPECIFIED INGREDIENT

REACTIONS (6)
  - Visual impairment [Not Recovered/Not Resolved]
  - Product solubility abnormal [Not Recovered/Not Resolved]
  - Product residue present [Not Recovered/Not Resolved]
  - Physical product label issue [Not Recovered/Not Resolved]
  - Lacrimation increased [Not Recovered/Not Resolved]
  - Eye irritation [Not Recovered/Not Resolved]

NARRATIVE: CASE EVENT DATE: 20210801
